APPROVED DRUG PRODUCT: TECHNECOLL
Active Ingredient: TECHNETIUM TC-99M SULFUR COLLOID KIT
Strength: N/A
Dosage Form/Route: SOLUTION;INJECTION, ORAL
Application: N017059 | Product #001
Applicant: MALLINCKRODT MEDICAL INC
Approved: Approved Prior to Jan 1, 1982 | RLD: No | RS: No | Type: DISCN